FAERS Safety Report 12946804 (Version 5)
Quarter: 2017Q2

REPORT INFORMATION
  Report Type: Report from Study
  Country: CA (occurrence: CA)
  Receive Date: 20161116
  Receipt Date: 20170515
  Transmission Date: 20170830
  Serious: Yes (Hospitalization, Other)
  Sender: FDA-Public Use
  Company Number: CA-VALIDUS PHARMACEUTICALS LLC-CA-2016VAL002987

PATIENT

DRUGS (4)
  1. PANTOPRAZOLE [Concomitant]
     Active Substance: PANTOPRAZOLE
     Indication: PRODUCT USED FOR UNKNOWN INDICATION
     Dosage: UNK
     Dates: start: 2016
  2. SANDOSTATIN [Suspect]
     Active Substance: OCTREOTIDE ACETATE
     Indication: METASTATIC GASTRIC CANCER
     Dosage: 30 MG, QMO (EVERY 4 WEEK)
     Route: 030
     Dates: start: 20160311
  3. SANDOSTATIN [Suspect]
     Active Substance: OCTREOTIDE ACETATE
     Indication: GASTRINOMA
  4. METOPROLOL TARTRATE. [Suspect]
     Active Substance: METOPROLOL TARTRATE
     Indication: PRODUCT USED FOR UNKNOWN INDICATION
     Dosage: 25 MG, BID
     Route: 065

REACTIONS (29)
  - Peptic ulcer [Recovered/Resolved]
  - Dehydration [Recovered/Resolved]
  - Gastrointestinal sounds abnormal [Recovered/Resolved]
  - Fatigue [Not Recovered/Not Resolved]
  - Arthralgia [Unknown]
  - Vomiting [Recovered/Resolved]
  - Pollakiuria [Unknown]
  - Blood pressure diastolic decreased [Unknown]
  - Paraesthesia [Unknown]
  - Mobility decreased [Not Recovered/Not Resolved]
  - Dementia [Unknown]
  - Capillary nail refill test abnormal [Unknown]
  - Peripheral coldness [Recovered/Resolved]
  - Abdominal pain [Recovered/Resolved]
  - Diarrhoea [Recovered/Resolved]
  - Gait disturbance [Unknown]
  - Swelling face [Unknown]
  - Feeling hot [Unknown]
  - Confusional state [Unknown]
  - Insomnia [Unknown]
  - Eating disorder [Unknown]
  - Blood pressure systolic increased [Unknown]
  - Body temperature decreased [Unknown]
  - Pain in extremity [Unknown]
  - Radial pulse decreased [Unknown]
  - Abdominal mass [Unknown]
  - Heart rate abnormal [Recovered/Resolved]
  - Gastrointestinal haemorrhage [Recovered/Resolved]
  - Haematochezia [Recovered/Resolved]

NARRATIVE: CASE EVENT DATE: 2016
